FAERS Safety Report 5428989-2 (Version None)
Quarter: 2007Q3

REPORT INFORMATION
  Report Type: 
  Country: None (occurrence: None)
  Receive Date: 20070829
  Receipt Date: 20070821
  Transmission Date: 20080115
  Serious: Yes (Other)
  Sender: FDA-Public Use
  Company Number: GBWYE992910JUL07

PATIENT
  Age: 36 Year
  Sex: Male

DRUGS (7)
  1. VENLAFAXIINE HCL [Suspect]
     Indication: DEPRESSION
     Route: 048
     Dates: start: 20000101, end: 20060101
  2. VENLAFAXIINE HCL [Interacting]
     Route: 048
     Dates: start: 20060101, end: 20060101
  3. VENLAFAXIINE HCL [Interacting]
     Route: 048
     Dates: start: 20060101, end: 20060101
  4. DIAZEPAM [Concomitant]
     Indication: ANXIETY
     Route: 048
  5. ZOPICLONE [Concomitant]
     Indication: INSOMNIA
     Route: 048
  6. CARBAMAZEPINE [Concomitant]
     Indication: BIPOLAR DISORDER
     Route: 048
  7. DULOXETINE [Interacting]
     Indication: DEPRESSION
     Dosage: 60MG FREQUENCY UNKNOWN
     Dates: start: 20060101

REACTIONS (5)
  - DISINHIBITION [None]
  - DRUG INEFFECTIVE [None]
  - DRUG INTERACTION [None]
  - HOMICIDAL IDEATION [None]
  - HOMICIDE [None]
